FAERS Safety Report 5845206-X (Version None)
Quarter: 2008Q3

REPORT INFORMATION
  Report Type: 
  Country: None (occurrence: None)
  Receive Date: 20080814
  Receipt Date: 20080807
  Transmission Date: 20090109
  Serious: Yes (Hospitalization)
  Sender: FDA-Public Use
  Company Number: A0682460A

PATIENT
  Age: 35 Year
  Sex: Male

DRUGS (6)
  1. LAMICTAL [Suspect]
     Indication: EPILEPSY
     Dosage: 250MG TWICE PER DAY
     Route: 048
     Dates: start: 20070101
  2. POLYPHARMACY [Suspect]
  3. PRIMIDONE [Concomitant]
  4. VALPROIC ACID [Concomitant]
  5. FLUOXETINE HCL [Concomitant]
  6. TRILEPTAL [Concomitant]

REACTIONS (9)
  - CONVULSION [None]
  - FALL [None]
  - FOREIGN BODY TRAUMA [None]
  - GASTROOESOPHAGEAL REFLUX DISEASE [None]
  - PHARMACEUTICAL PRODUCT COMPLAINT [None]
  - PURGING [None]
  - SKIN LACERATION [None]
  - SOMNOLENCE [None]
  - SYNCOPE [None]
